FAERS Safety Report 6525710-1 (Version None)
Quarter: 2009Q4

REPORT INFORMATION
  Report Type: 
  Country: None (occurrence: None)
  Receive Date: 20091214
  Receipt Date: 20090107
  Transmission Date: 20100525
  Serious: Yes (Other)
  Sender: FDA-Public Use
  Company Number: 607085

PATIENT
  Age: 51 Year
  Sex: Female
  Weight: 62.1 kg

DRUGS (4)
  1. PEGASYS [Suspect]
     Indication: HEPATITIS C
     Dosage: 180 UG 1 PER WEEK SUBCUTANEOUS
     Route: 058
     Dates: start: 20080229, end: 20090121
  2. RIBAVIRIN [Suspect]
     Indication: HEPATITIS C
     Dosage: 1000 MG DAILY ORAL
     Route: 048
     Dates: start: 20080229, end: 20090121
  3. PROCRIT [Concomitant]
  4. PREMARIN CREAM (ESTROGENS, CONJUGATED) [Concomitant]

REACTIONS (1)
  - PULMONARY SARCOIDOSIS [None]
